FAERS Safety Report 8401675-2 (Version None)
Quarter: 2012Q2

REPORT INFORMATION
  Report Type: 
  Country: None (occurrence: None)
  Receive Date: 20120601
  Receipt Date: 20120525
  Transmission Date: 20120825
  Serious: Yes (Other)
  Sender: FDA-Public Use
  Company Number: JP-ASTELLAS-2012JP004616

PATIENT
  Age: 64 Year
  Sex: Female

DRUGS (8)
  1. ATELEC [Concomitant]
     Dosage: 10 MG, UNKNOWN/D
     Route: 048
     Dates: start: 20100101
  2. PLAVIX [Concomitant]
     Dosage: 75 MG, UNKNOWN/D
     Route: 048
     Dates: start: 20100101
  3. CRESTOR [Concomitant]
     Dosage: 2.5 MG, UNKNOWN/D
     Route: 048
     Dates: start: 20100101
  4. LANSOPRAZOLE [Concomitant]
     Dosage: 15 MG, UNKNOWN/D
     Route: 048
     Dates: start: 20100101
  5. VITAMIN B12 [Concomitant]
     Dosage: 500 UG, UNKNOWN/D
     Route: 048
     Dates: start: 20100101
  6. VESICARE [Suspect]
     Indication: POLLAKIURIA
     Dosage: 5 MG, UNKNOWN/D
     Route: 048
     Dates: start: 20120509
  7. OLMESARTAN MEDOXOMIL [Concomitant]
     Dosage: 20 MG, UNKNOWN/D
     Route: 048
     Dates: start: 20100101
  8. HUMALOG [Concomitant]
     Indication: TYPE 2 DIABETES MELLITUS
     Dosage: 12 IU, UNKNOWN/D
     Route: 058
     Dates: start: 20100101

REACTIONS (1)
  - DIABETES MELLITUS INADEQUATE CONTROL [None]
